FAERS Safety Report 7893180-7 (Version None)
Quarter: 2011Q4

REPORT INFORMATION
  Report Type: 
  Country: None (occurrence: None)
  Receive Date: 20111104
  Receipt Date: 20111027
  Transmission Date: 20120403
  Serious: Yes (Other)
  Sender: FDA-Public Use
  Company Number: PHHY2010CA22393

PATIENT
  Sex: Male

DRUGS (4)
  1. EXJADE [Suspect]
     Indication: SICKLE CELL ANAEMIA
     Dosage: 2000 MG, QD
     Route: 048
  2. PENICILLIN [Concomitant]
     Indication: RHEUMATIC FEVER
  3. EXJADE [Suspect]
     Dosage: 2500 MG, QD
     Route: 048
  4. FOLIC ACID [Concomitant]
     Indication: INFECTION

REACTIONS (5)
  - FATIGUE [None]
  - PERONEAL NERVE PALSY [None]
  - SERUM FERRITIN INCREASED [None]
  - DIARRHOEA [None]
  - BLOOD PRESSURE INCREASED [None]
